FAERS Safety Report 15256536 (Version 1)
Quarter: 2018Q3

REPORT INFORMATION
  Report Type: Spontaneous
  Country: US (occurrence: US)
  Receive Date: 20180718
  Receipt Date: 20180718
  Transmission Date: 20181010
  Serious: Yes (Disabling)
  Sender: FDA-Public Use
  Company Number: None

PATIENT
  Age: 53 Year
  Sex: Female
  Weight: 87.75 kg

DRUGS (6)
  1. CYMBALTA [Concomitant]
     Active Substance: DULOXETINE HYDROCHLORIDE
  2. LEVAQUIN [Suspect]
     Active Substance: LEVOFLOXACIN
     Indication: SINUSITIS
     Dates: start: 20080514, end: 20080518
  3. FAMOTIDINE. [Concomitant]
     Active Substance: FAMOTIDINE
  4. VITAMIN B12 [Concomitant]
     Active Substance: CYANOCOBALAMIN
  5. VITAMIN D [Concomitant]
     Active Substance: CHOLECALCIFEROL
  6. FISH OIL [Concomitant]
     Active Substance: FISH OIL

REACTIONS (23)
  - External ear pain [None]
  - Dry mouth [None]
  - Depressed level of consciousness [None]
  - Coordination abnormal [None]
  - Dry eye [None]
  - Muscle spasms [None]
  - Temperature intolerance [None]
  - Soft tissue injury [None]
  - Hyperhidrosis [None]
  - Vertigo [None]
  - Ligament sprain [None]
  - Migraine [None]
  - Tinnitus [None]
  - Neuropathy peripheral [None]
  - Choking [None]
  - Multiple fractures [None]
  - Typical aura without headache [None]
  - Skin burning sensation [None]
  - Dyskinesia [None]
  - Fall [None]
  - Vestibular neuronitis [None]
  - Vitamin D decreased [None]
  - Vitreous floaters [None]

NARRATIVE: CASE EVENT DATE: 20080514
